FAERS Safety Report 4667961-7 (Version None)
Quarter: 2005Q2

REPORT INFORMATION
  Report Type: 
  Country: None (occurrence: None)
  Receive Date: 20050520
  Receipt Date: 20050513
  Transmission Date: 20051028
  Serious: Yes (Hospitalization)
  Sender: FDA-Public Use
  Company Number: 2005AP02886

PATIENT
  Sex: Male

DRUGS (5)
  1. CASODEX [Suspect]
     Indication: PROSTATE CANCER
     Route: 048
  2. LEUPLIN [Concomitant]
     Route: 058
  3. MEVALOTIN [Concomitant]
     Route: 048
  4. AMLODIN [Concomitant]
     Route: 048
  5. ZANTAC [Concomitant]

REACTIONS (2)
  - PLATELET COUNT DECREASED [None]
  - RENAL DISORDER [None]
